FAERS Safety Report 17334346 (Version 3)
Quarter: 2020Q1

REPORT INFORMATION
  Report Type: Report from Study
  Country: None (occurrence: GB)
  Receive Date: 20200128
  Receipt Date: 20200224
  Transmission Date: 20200409
  Serious: Yes (Other)
  Sender: FDA-Public Use
  Company Number: GB-ABBVIE-20K-167-3247021-00

PATIENT
  Sex: Female

DRUGS (1)
  1. SKYRIZI [Suspect]
     Active Substance: RISANKIZUMAB-RZAA
     Indication: PRODUCT USED FOR UNKNOWN INDICATION
     Route: 058

REACTIONS (10)
  - Paraesthesia [Recovering/Resolving]
  - Hypoaesthesia oral [Recovering/Resolving]
  - Ear discomfort [Recovering/Resolving]
  - Blood pressure increased [Recovering/Resolving]
  - Dry mouth [Recovering/Resolving]
  - Lip swelling [Recovering/Resolving]
  - Anaphylactic reaction [Recovering/Resolving]
  - Peripheral coldness [Recovering/Resolving]
  - Panic reaction [Recovering/Resolving]
  - Tongue erythema [Recovering/Resolving]
